FAERS Safety Report 5143441-X (Version None)
Quarter: 2006Q4

REPORT INFORMATION
  Report Type: 
  Country: None (occurrence: None)
  Receive Date: 20061101
  Receipt Date: 20061101
  Transmission Date: 20070319
  Serious: Yes (Hospitalization)
  Sender: FDA-Public Use
  Company Number: None

PATIENT
  Sex: Male
  Weight: 94.8018 kg

DRUGS (1)
  1. OMEPRAZOLE [Suspect]
     Indication: DYSPEPSIA
     Dosage: 20 MG DAILY PO
     Route: 048
     Dates: start: 20040304, end: 20060711

REACTIONS (4)
  - CHOLELITHIASIS [None]
  - HAEMATURIA [None]
  - MYOCARDIAL ISCHAEMIA [None]
  - PANCREATITIS [None]
